FAERS Safety Report 10068535 (Version 1)
Quarter: 2014Q2

REPORT INFORMATION
  Report Type: Spontaneous
  Country: US (occurrence: US)
  Receive Date: 20140409
  Receipt Date: 20140409
  Transmission Date: 20141212
  Serious: Yes (Hospitalization)
  Sender: FDA-Public Use
  Company Number: US-GLAXOSMITHKLINE-A1067872A

PATIENT
  Age: 66 Year
  Sex: Female

DRUGS (32)
  1. BENLYSTA [Suspect]
     Indication: SYSTEMIC LUPUS ERYTHEMATOSUS
     Route: 042
     Dates: start: 20120109, end: 201310
  2. COLCRYS [Concomitant]
  3. FIORICET [Concomitant]
  4. BENADRYL [Concomitant]
  5. VANCOMYCIN [Concomitant]
  6. BUMEX [Concomitant]
  7. PLAQUENIL [Concomitant]
  8. IMURAN [Concomitant]
  9. PREDNISONE [Concomitant]
  10. PREVACID [Concomitant]
  11. ZOFRAN [Concomitant]
  12. AMITIZA [Concomitant]
  13. ATENOLOL [Concomitant]
  14. ZETIA [Concomitant]
  15. SIMETHICONE [Concomitant]
  16. EDARBI [Concomitant]
  17. CLONIDINE [Concomitant]
  18. ASPIRIN [Concomitant]
  19. SINGULAIR [Concomitant]
  20. LEXAPRO [Concomitant]
  21. CELEBREX [Concomitant]
  22. PERCOCET [Concomitant]
  23. MORPHINE [Concomitant]
  24. LIDODERM PATCHES [Concomitant]
  25. PRO-AIR [Concomitant]
  26. FLUTICASONE PROPIONATE [Concomitant]
  27. LIDOCAINE 4% [Concomitant]
  28. FLEXERIL [Concomitant]
  29. TOPAMAX [Concomitant]
  30. VOLTAREN GEL [Concomitant]
  31. AMBIEN [Concomitant]
  32. BENTYL [Concomitant]

REACTIONS (16)
  - Osteomyelitis [Not Recovered/Not Resolved]
  - Monarthritis [Not Recovered/Not Resolved]
  - Peripheral swelling [Not Recovered/Not Resolved]
  - Hip arthroplasty [Not Recovered/Not Resolved]
  - Joint dislocation [Not Recovered/Not Resolved]
  - Staphylococcal infection [Unknown]
  - Gout [Not Recovered/Not Resolved]
  - Upper respiratory tract infection [Not Recovered/Not Resolved]
  - Skin ulcer [Not Recovered/Not Resolved]
  - Impaired healing [Not Recovered/Not Resolved]
  - Hypokinesia [Not Recovered/Not Resolved]
  - Pain in extremity [Not Recovered/Not Resolved]
  - Fatigue [Unknown]
  - Influenza [Unknown]
  - Energy increased [Unknown]
  - Arthropathy [Not Recovered/Not Resolved]
